FAERS Safety Report 15627580 (Version 2)
Quarter: 2018Q4

REPORT INFORMATION
  Report Type: Spontaneous
  Country: FR (occurrence: FR)
  Receive Date: 20181116
  Receipt Date: 20181126
  Transmission Date: 20190205
  Serious: Yes (Other)
  Sender: FDA-Public Use
  Company Number: FR-IMPAX LABORATORIES, LLC-2018-IPXL-03781

PATIENT
  Age: 15 Year
  Sex: Female
  Weight: 63 kg

DRUGS (11)
  1. SEVELAMER CARBONATE. [Suspect]
     Active Substance: SEVELAMER CARBONATE
     Indication: PRODUCT USE IN UNAPPROVED INDICATION
  2. ALUMINUM /00057401/ [Suspect]
     Active Substance: ALUMINUM HYDROXIDE
     Indication: CALCINOSIS
     Dosage: 580 MILLIGRAM, 2 /DAY
     Route: 065
  3. ALUMINUM                           /00057401/ [Suspect]
     Active Substance: ALUMINUM HYDROXIDE
     Indication: HYPERPHOSPHATAEMIA
  4. NICOTINAMIDE [Suspect]
     Active Substance: NIACINAMIDE
     Indication: HYPERPHOSPHATAEMIA
  5. NICOTINAMIDE [Suspect]
     Active Substance: NIACINAMIDE
     Indication: CALCINOSIS
     Dosage: UNK
     Route: 065
  6. ACETAZOLAMIDE. [Suspect]
     Active Substance: ACETAZOLAMIDE
     Indication: HYPERPHOSPHATAEMIA
     Dosage: 375 MILLIGRAM, DAILY
     Route: 065
  7. SEVELAMER CARBONATE. [Suspect]
     Active Substance: SEVELAMER CARBONATE
     Indication: CALCINOSIS
     Dosage: 1.6 GRAM, 3 /DAY
     Route: 065
  8. KETOCONAZOLE. [Suspect]
     Active Substance: KETOCONAZOLE
     Indication: CALCINOSIS
     Dosage: 200 MILLIGRAM, 2 /DAY
     Route: 048
  9. SEVELAMER CARBONATE. [Suspect]
     Active Substance: SEVELAMER CARBONATE
     Indication: HYPERPHOSPHATAEMIA
  10. ACETAZOLAMIDE. [Suspect]
     Active Substance: ACETAZOLAMIDE
     Indication: CALCINOSIS
     Dosage: UNK
     Route: 065
  11. KETOCONAZOLE. [Suspect]
     Active Substance: KETOCONAZOLE
     Indication: HYPERPHOSPHATAEMIA

REACTIONS (4)
  - Blood 1,25-dihydroxycholecalciferol increased [Unknown]
  - Calcinosis [Unknown]
  - Drug ineffective for unapproved indication [Unknown]
  - Treatment noncompliance [Unknown]
